FAERS Safety Report 8998003 (Version 1)
Quarter: 2013Q1

REPORT INFORMATION
  Report Type: Spontaneous
  Country: IT (occurrence: IT)
  Receive Date: 20130104
  Receipt Date: 20130104
  Transmission Date: 20140127
  Serious: Yes (Hospitalization)
  Sender: FDA-Public Use
  Company Number: IT-ROCHE-1175126

PATIENT
  Age: 78 Year
  Sex: Male

DRUGS (7)
  1. MABTHERA [Suspect]
     Indication: B-CELL LYMPHOMA
     Route: 042
     Dates: start: 20121217, end: 20121217
  2. PARACETAMOL [Concomitant]
     Route: 048
     Dates: start: 20121217, end: 20121217
  3. CHLORPHENAMINE MALEATE [Concomitant]
     Route: 042
     Dates: start: 20121217, end: 20121217
  4. BENDAMUSTINE HYDROCHLORIDE [Concomitant]
     Route: 042
     Dates: start: 20121217, end: 20121217
  5. URBASON SOLUBILE [Concomitant]
     Route: 042
     Dates: start: 20121217, end: 20121217
  6. RANIDIL [Concomitant]
     Route: 042
     Dates: start: 20121217, end: 20121217
  7. PLASIL [Concomitant]
     Route: 042
     Dates: start: 20121217, end: 20121217

REACTIONS (3)
  - Musculoskeletal pain [Recovering/Resolving]
  - Flushing [Recovering/Resolving]
  - Feeling hot [Recovering/Resolving]
